FAERS Safety Report 20790843 (Version 5)
Quarter: 2023Q1

REPORT INFORMATION
  Report Type: Report from Study
  Country: SK (occurrence: SK)
  Receive Date: 20220505
  Receipt Date: 20230217
  Transmission Date: 20230418
  Serious: Yes (Other)
  Sender: FDA-Public Use
  Company Number: SK-GLAXOSMITHKLINE-SK2022GSK073272

PATIENT

DRUGS (1)
  1. GEPOTIDACIN [Suspect]
     Active Substance: GEPOTIDACIN
     Indication: Cystitis
     Dosage: 1500 MG, BID
     Route: 048
     Dates: start: 20220405, end: 20220407

REACTIONS (1)
  - Dysarthria [Recovered/Resolved]

NARRATIVE: CASE EVENT DATE: 20220407
